FAERS Safety Report 4824085-3 (Version None)
Quarter: 2005Q4

REPORT INFORMATION
  Report Type: 
  Country: None (occurrence: None)
  Receive Date: 20051108
  Receipt Date: 20051028
  Transmission Date: 20060501
  Serious: Yes (Death)
  Sender: FDA-Public Use
  Company Number: HQWYE234602SEP05

PATIENT
  Age: 48 Year
  Sex: Female
  Weight: 45 kg

DRUGS (1)
  1. RAPAMUNE [Suspect]
     Dosage: DOSE/FREQUENCY, ORAL
     Route: 048
     Dates: start: 20020101

REACTIONS (2)
  - PNEUMONIA [None]
  - RESPIRATORY FAILURE [None]
